FAERS Safety Report 21790122 (Version 1)
Quarter: 2022Q4

REPORT INFORMATION
  Report Type: Spontaneous
  Country: FR (occurrence: FR)
  Receive Date: 20221228
  Receipt Date: 20221228
  Transmission Date: 20230112
  Serious: Yes (Hospitalization, Other)
  Sender: FDA-Public Use
  Company Number: None

PATIENT
  Age: 16 Year
  Sex: Female

DRUGS (1)
  1. ACETAMINOPHEN [Suspect]
     Active Substance: ACETAMINOPHEN
     Indication: Product used for unknown indication
     Dosage: VOLUNTARY INTOXICATION DOSE NOT KNOWN
     Route: 065
     Dates: start: 20220823, end: 20220823

REACTIONS (3)
  - Intentional overdose [Recovered/Resolved]
  - Prothrombin time shortened [Not Recovered/Not Resolved]
  - Suicide attempt [Unknown]
